FAERS Safety Report 6559012-4 (Version None)
Quarter: 2010Q1

REPORT INFORMATION
  Report Type: 
  Country: None (occurrence: None)
  Receive Date: 20100129
  Receipt Date: 20100121
  Transmission Date: 20100710
  Serious: Yes (Other)
  Sender: FDA-Public Use
  Company Number: IT-BAYER-201013021GPV

PATIENT
  Age: 69 Year
  Sex: Male

DRUGS (1)
  1. ASPIRIN [Suspect]
     Indication: PROPHYLAXIS
     Dosage: TOTAL DAILY DOSE: 100 MG
     Route: 048
     Dates: start: 20090101, end: 20100106

REACTIONS (2)
  - EPISTAXIS [None]
  - HYPOTENSION [None]
